FAERS Safety Report 4815347-4 (Version None)
Quarter: 2005Q4

REPORT INFORMATION
  Report Type: 
  Country: None (occurrence: None)
  Receive Date: 20051027
  Receipt Date: 20051019
  Transmission Date: 20060501
  Serious: Yes (Disabling)
  Sender: FDA-Public Use
  Company Number: 2005S1000224

PATIENT
  Age: 35 Year
  Sex: Female

DRUGS (7)
  1. CUBICIN [Suspect]
     Indication: CELLULITIS ORBITAL
  2. CUBICIN [Suspect]
     Indication: MENINGITIS
  3. CUBICIN [Suspect]
     Indication: STAPHYLOCOCCAL INFECTION
  4. VANCOMYCIN [Concomitant]
  5. CEFTRIAXONE [Concomitant]
  6. CEFEPIME [Concomitant]
  7. AMPHOTERICIN B [Concomitant]

REACTIONS (2)
  - BLINDNESS UNILATERAL [None]
  - NEUTROPHIL PERCENTAGE INCREASED [None]
